FAERS Safety Report 19784585 (Version 1)
Quarter: 2021Q3

REPORT INFORMATION
  Report Type: Spontaneous
  Country: US (occurrence: US)
  Receive Date: 20210901
  Receipt Date: 20210901
  Transmission Date: 20211014
  Serious: Yes (Death)
  Sender: FDA-Public Use
  Company Number: None

PATIENT
  Age: 79 Year
  Sex: Female

DRUGS (1)
  1. IMATINIB 100MG [Suspect]
     Active Substance: IMATINIB
     Indication: MYELOFIBROSIS
     Route: 048
     Dates: start: 20210507

REACTIONS (2)
  - Urinary tract infection [None]
  - SARS-CoV-2 antibody test positive [None]

NARRATIVE: CASE EVENT DATE: 20210816
